FAERS Safety Report 20167914 (Version 1)
Quarter: 2021Q4

REPORT INFORMATION
  Report Type: Report from Study
  Country: US (occurrence: US)
  Receive Date: 20211210
  Receipt Date: 20211210
  Transmission Date: 20220304
  Serious: Yes (Hospitalization)
  Sender: FDA-Public Use
  Company Number: US-ABBVIE-21K-163-4192336-00

PATIENT
  Sex: Male

DRUGS (1)
  1. RINVOQ [Suspect]
     Active Substance: UPADACITINIB
     Indication: Rheumatoid arthritis
     Route: 048
     Dates: start: 202110

REACTIONS (4)
  - Blood pressure increased [Recovered/Resolved]
  - Sinus disorder [Unknown]
  - Productive cough [Unknown]
  - Eye pain [Unknown]

NARRATIVE: CASE EVENT DATE: 20210101
